FAERS Safety Report 14305134 (Version 1)
Quarter: 2017Q4

REPORT INFORMATION
  Report Type: Spontaneous
  Country: US (occurrence: US)
  Receive Date: 20171219
  Receipt Date: 20171219
  Transmission Date: 20180321
  Serious: Yes (Other)
  Sender: FDA-Public Use
  Company Number: US-OTSUKA-15021884

PATIENT
  Sex: Male
  Weight: 95.24 kg

DRUGS (3)
  1. BUPROPION. [Concomitant]
     Active Substance: BUPROPION
     Indication: PRODUCT USED FOR UNKNOWN INDICATION
     Dosage: UNK
     Route: 065
  2. RESTORIL [Suspect]
     Active Substance: TEMAZEPAM
     Indication: PRODUCT USED FOR UNKNOWN INDICATION
     Dosage: UNK
     Route: 065
  3. ABILIFY [Suspect]
     Active Substance: ARIPIPRAZOLE
     Indication: DEPRESSION
     Dosage: STARTED 5MG,INCREASED 15MG THEN 10MGBID,20MG 1/2TAB BID INCREASE-20MG,30MG CUT IN HALF  CURRENT:10MG
     Route: 065
     Dates: start: 20100209

REACTIONS (15)
  - Loss of consciousness [Unknown]
  - Asthenia [Unknown]
  - Hypersomnia [Unknown]
  - Urine abnormality [Unknown]
  - Anxiety [Unknown]
  - Photosensitivity reaction [Unknown]
  - Dizziness [Unknown]
  - Hyperphagia [Unknown]
  - Headache [Unknown]
  - Hypotension [Unknown]
  - Drooling [Unknown]
  - Fall [Unknown]
  - Depression [Unknown]
  - Treatment noncompliance [Unknown]
  - Disturbance in attention [Unknown]
